FAERS Safety Report 18676622 (Version 1)
Quarter: 2020Q4

REPORT INFORMATION
  Report Type: Spontaneous
  Country: CA (occurrence: CA)
  Receive Date: 20201229
  Receipt Date: 20201229
  Transmission Date: 20210114
  Serious: Yes (Death, Life-Threatening)
  Sender: FDA-Public Use
  Company Number: CA-PFIZER INC-2020512583

PATIENT
  Age: 47 Year
  Sex: Female
  Weight: 42 kg

DRUGS (16)
  1. ALMAGEL [ALMAGATE] [Concomitant]
     Active Substance: ALMAGATE
  2. DEXAMETHASONE. [Concomitant]
     Active Substance: DEXAMETHASONE
     Route: 065
  3. NAPROSYN E [Concomitant]
     Active Substance: NAPROXEN
  4. PANTOLOC [PANTOPRAZOLE] [Concomitant]
     Active Substance: PANTOPRAZOLE SODIUM
     Dosage: TABLET (ENTERIC-COATED)
  5. CANDESARTAN. [Concomitant]
     Active Substance: CANDESARTAN
  6. HYDROMORPHONE [Concomitant]
     Active Substance: HYDROMORPHONE
  7. ONDANSETRON [Concomitant]
     Active Substance: ONDANSETRON
  8. CALCIUM [Concomitant]
     Active Substance: CALCIUM
  9. LORAZEPAM. [Concomitant]
     Active Substance: LORAZEPAM
  10. IMODIUM [Concomitant]
     Active Substance: LOPERAMIDE HYDROCHLORIDE
  11. PROCHLORPERAZINE. [Concomitant]
     Active Substance: PROCHLORPERAZINE
  12. CARBOPLATIN. [Suspect]
     Active Substance: CARBOPLATIN
     Indication: BREAST CANCER
     Dosage: UNK
  13. LAX-A-DAY [Concomitant]
     Active Substance: POLYETHYLENE GLYCOL 3350
  14. SECARIS [Concomitant]
     Active Substance: PROPYLENE GLYCOL
  15. GEMCITABINE HYDROCHLORIDE. [Suspect]
     Active Substance: GEMCITABINE HYDROCHLORIDE
     Indication: BREAST CANCER
     Dosage: UNK
  16. PRISTIQ EXTENDED-RELEASE [Concomitant]
     Active Substance: DESVENLAFAXINE SUCCINATE
     Dosage: UNK

REACTIONS (1)
  - Febrile neutropenia [Fatal]
